FAERS Safety Report 24803952 (Version 1)
Quarter: 2025Q1

REPORT INFORMATION
  Report Type: Spontaneous
  Country: US (occurrence: US)
  Receive Date: 20250103
  Receipt Date: 20250103
  Transmission Date: 20250408
  Serious: Yes (Life-Threatening, Hospitalization)
  Sender: SANOFI AVENTIS
  Company Number: US-DialogSolutions-SAAVPROD-PI724972-C1

PATIENT
  Age: 89 Year
  Sex: Female

DRUGS (2)
  1. OXALIPLATIN [Suspect]
     Active Substance: OXALIPLATIN
     Indication: Linitis plastica
  2. CAPECITABINE [Suspect]
     Active Substance: CAPECITABINE
     Indication: Linitis plastica

REACTIONS (3)
  - Diarrhoea [Recovering/Resolving]
  - Electrolyte depletion [Recovering/Resolving]
  - Anal incontinence [Recovering/Resolving]
